FAERS Safety Report 9535566 (Version 2)
Quarter: 2015Q4

REPORT INFORMATION
  Report Type: Report from Study
  Country: US (occurrence: US)
  Receive Date: 20130919
  Receipt Date: 20151021
  Transmission Date: 20160305
  Serious: Yes (Hospitalization, Other)
  Sender: FDA-Public Use
  Company Number: US-ROCHE-1277646

PATIENT
  Sex: Female

DRUGS (19)
  1. LUCENTIS [Suspect]
     Active Substance: RANIBIZUMAB
     Indication: MACULAR ISCHAEMIA
     Route: 050
     Dates: start: 20121204
  2. LEXAPRO [Concomitant]
     Active Substance: ESCITALOPRAM OXALATE
  3. LUCENTIS [Suspect]
     Active Substance: RANIBIZUMAB
     Indication: MACULAR OEDEMA
     Dosage: OS
     Route: 050
     Dates: start: 20120925
  4. LUCENTIS [Suspect]
     Active Substance: RANIBIZUMAB
     Indication: DIABETIC RETINOPATHY
     Route: 050
     Dates: start: 20121029
  5. HUMALOG [Concomitant]
     Active Substance: INSULIN LISPRO
  6. CYCLOPENTOLATE HYDROCHLORIDE. [Concomitant]
     Active Substance: CYCLOPENTOLATE HYDROCHLORIDE
     Dosage: 1 PERCENT
     Route: 065
  7. LUCENTIS [Suspect]
     Active Substance: RANIBIZUMAB
     Indication: DIABETIC RETINAL OEDEMA
     Route: 050
     Dates: start: 20130121
  8. LANTUS [Concomitant]
     Active Substance: INSULIN GLARGINE
  9. ERYTHROMYCIN. [Concomitant]
     Active Substance: ERYTHROMYCIN
  10. CYMBALTA [Concomitant]
     Active Substance: DULOXETINE HYDROCHLORIDE
  11. JANUVIA [Concomitant]
     Active Substance: SITAGLIPTIN PHOSPHATE
  12. LUCENTIS [Suspect]
     Active Substance: RANIBIZUMAB
     Indication: DIABETIC RETINOPATHY
     Route: 050
  13. CELEXA (UNITED STATES) [Concomitant]
     Route: 065
  14. ALCAINE [Concomitant]
     Active Substance: PROPARACAINE HYDROCHLORIDE
     Route: 061
  15. XYLOCAINE [Concomitant]
     Active Substance: LIDOCAINE HYDROCHLORIDE
     Dosage: 2 PERCENT
     Route: 057
  16. BETADINE [Concomitant]
     Active Substance: POVIDONE-IODINE
     Dosage: 5 PERCENT
     Route: 065
  17. XANAX [Concomitant]
     Active Substance: ALPRAZOLAM
  18. LUCENTIS [Suspect]
     Active Substance: RANIBIZUMAB
     Indication: DIABETIC RETINOPATHY
     Route: 050
     Dates: start: 20130225
  19. PRIMIDONE. [Concomitant]
     Active Substance: PRIMIDONE
     Route: 065

REACTIONS (12)
  - Retinal scar [Unknown]
  - Visual acuity reduced [Unknown]
  - Retinal degeneration [Unknown]
  - Orthostatic hypotension [Unknown]
  - Metamorphopsia [Unknown]
  - Blood glucose fluctuation [Unknown]
  - Vision blurred [Unknown]
  - Back pain [Unknown]
  - Visual acuity reduced [Not Recovered/Not Resolved]
  - Visual impairment [Unknown]
  - Blindness [Unknown]
  - Cutis laxa [Unknown]
